FAERS Safety Report 7513916-4 (Version None)
Quarter: 2011Q2

REPORT INFORMATION
  Report Type: 
  Country: None (occurrence: None)
  Receive Date: 20110531
  Receipt Date: 20110523
  Transmission Date: 20111010
  Serious: Yes (Congenital Anomaly, Other)
  Sender: FDA-Public Use
  Company Number: PHHY2011JP44235

PATIENT

DRUGS (1)
  1. LISINOPRIL [Suspect]
     Dosage: UNK
     Route: 064

REACTIONS (5)
  - RENAL APLASIA [None]
  - NEONATAL RESPIRATORY DISTRESS SYNDROME [None]
  - DRUG EXPOSURE DURING PREGNANCY [None]
  - SKULL MALFORMATION [None]
  - RENAL FAILURE ACUTE [None]
